FAERS Safety Report 7320422-9 (Version None)
Quarter: 2011Q1

REPORT INFORMATION
  Report Type: 
  Country: None (occurrence: None)
  Receive Date: 20110228
  Receipt Date: 20110218
  Transmission Date: 20110831
  Serious: Yes (Hospitalization)
  Sender: FDA-Public Use
  Company Number: A0906548A

PATIENT
  Age: 75 Year
  Sex: Female
  Weight: 61.8 kg

DRUGS (7)
  1. MULTI-VITAMIN [Concomitant]
     Indication: SUPPLEMENTATION THERAPY
     Dosage: 1TAB PER DAY
     Route: 048
     Dates: start: 19800101
  2. BISOPROLOL FUMARATE AND HYDROCHLOROTHIAZIDE [Concomitant]
     Indication: BLOOD PRESSURE
     Route: 048
     Dates: start: 20080101, end: 20110113
  3. LAPATINIB [Suspect]
     Indication: BREAST CANCER
     Dosage: 750MG PER DAY
     Route: 048
     Dates: start: 20101215
  4. DOCETAXEL [Suspect]
     Indication: BREAST CANCER
     Dosage: 75MGM2 WEEKLY
     Route: 042
     Dates: start: 20101215
  5. LISINOPRIL [Concomitant]
     Indication: BLOOD PRESSURE
     Dosage: 5MG PER DAY
     Route: 048
     Dates: start: 20110113
  6. CARBOPLATIN [Suspect]
     Indication: BREAST CANCER
     Route: 042
     Dates: start: 20101215
  7. NEUPOGEN [Concomitant]

REACTIONS (1)
  - GASTROINTESTINAL TOXICITY [None]
